FAERS Safety Report 6271212-X (Version None)
Quarter: 2009Q3

REPORT INFORMATION
  Report Type: 
  Country: None (occurrence: None)
  Receive Date: 20090717
  Receipt Date: 20090709
  Transmission Date: 20100115
  Serious: Yes (Other)
  Sender: FDA-Public Use
  Company Number: US-TEVA-198197USA

PATIENT
  Sex: Male

DRUGS (4)
  1. CLARAVIS [Suspect]
     Indication: ACNE
     Route: 048
     Dates: start: 20081111, end: 20090501
  2. CLARAVIS [Suspect]
     Route: 048
     Dates: start: 20090508, end: 20090612
  3. MONTELUKAST [Concomitant]
  4. FLUTICASONE PROPIONATE [Concomitant]

REACTIONS (2)
  - EMOTIONAL DISTRESS [None]
  - INTENTIONAL SELF-INJURY [None]
